FAERS Safety Report 19512801 (Version 1)
Quarter: 2021Q3

REPORT INFORMATION
  Report Type: Spontaneous
  Country: GB (occurrence: GB)
  Receive Date: 20210709
  Receipt Date: 20210709
  Transmission Date: 20211014
  Serious: Yes (Other)
  Sender: FDA-Public Use
  Company Number: GB-MYLANLABS-2021M1039744

PATIENT
  Age: 91 Year
  Sex: Male
  Weight: 59 kg

DRUGS (10)
  1. RAMIPRIL. [Suspect]
     Active Substance: RAMIPRIL
     Indication: PRODUCT USED FOR UNKNOWN INDICATION
     Dosage: 1.25 MILLIGRAM, QD
     Dates: start: 20210316
  2. PREDNISOLONE. [Concomitant]
     Active Substance: PREDNISOLONE
     Dosage: REDUCE FROM 30MG (6 TABLETS) TO 0MG (0 TABLETS) BY 5MG (1 TABLET) EACH DAY
     Dates: start: 20210615
  3. FLUCLOXACILLIN [Concomitant]
     Active Substance: FLUCLOXACILLIN
     Indication: CELLULITIS
     Dosage: 1 DOSAGE FORM, QID
     Dates: start: 20210528, end: 20210604
  4. LACTULOSE. [Concomitant]
     Active Substance: LACTULOSE
     Indication: CONSTIPATION
     Dosage: TAKE TWO 5ML SPOONS ONCE OR TWICE A DAY
     Dates: start: 20210601
  5. LATANOPROST. [Concomitant]
     Active Substance: LATANOPROST
     Dosage: 1 GTT DROPS, QD
     Dates: start: 20200901
  6. FUROSEMIDE. [Concomitant]
     Active Substance: FUROSEMIDE
     Dosage: 1 DOSAGE FORM, BID (EACH MORNING AND LUNCH)
     Dates: start: 20210316
  7. BISOPROLOL [Concomitant]
     Active Substance: BISOPROLOL
     Dosage: 1 DOSAGE FORM, QD
     Dates: start: 20210316
  8. CLOBETASOL PROPIONATE. [Concomitant]
     Active Substance: CLOBETASOL PROPIONATE
     Dosage: VERY POTENT STEROID CREAM ? APPLY SPARINGLY TO ...
     Dates: start: 20210611
  9. AZOPT [Concomitant]
     Active Substance: BRINZOLAMIDE
     Dosage: 1 GTT DROPS, TID (TO BOTH EYES)
     Dates: start: 20200901
  10. SENNA                              /00142201/ [Concomitant]
     Active Substance: SENNA LEAF
     Dosage: TAKE ONE OR TWO TABLETS ONCE A DAY AT BEDTIME W
     Dates: start: 20201029

REACTIONS (2)
  - Blister [Unknown]
  - Pemphigoid [Recovering/Resolving]

NARRATIVE: CASE EVENT DATE: 20210616
